FAERS Safety Report 8247556-9 (Version None)
Quarter: 2012Q1

REPORT INFORMATION
  Report Type: 
  Country: None (occurrence: None)
  Receive Date: 20120330
  Receipt Date: 20120316
  Transmission Date: 20120608
  Serious: Yes (Other)
  Sender: FDA-Public Use
  Company Number: RU-CELGENEUS-251-C5013-11093594

PATIENT
  Sex: Male
  Weight: 104.5 kg

DRUGS (1)
  1. LENALIDOMIDE [Suspect]
     Indication: MANTLE CELL LYMPHOMA
     Dosage: 10 MILLIGRAM
     Route: 048
     Dates: start: 20100727, end: 20110717

REACTIONS (1)
  - GASTRIC CANCER STAGE I [None]
